FAERS Safety Report 8776415 (Version 2)
Quarter: 2012Q4

REPORT INFORMATION
  Report Type: 
  Country: US (occurrence: US)
  Receive Date: 20120910
  Receipt Date: 20120917
  Transmission Date: 20130627
  Serious: Yes (Other)
  Sender: FDA-Public Use
  Company Number: US-PFIZER INC-2012216677

PATIENT
  Age: 70 Year
  Sex: Male

DRUGS (6)
  1. LIPITOR [Suspect]
     Dosage: 80 mg, 1x/day
     Dates: start: 20080101
  2. NORVASC [Suspect]
     Dosage: UNK
     Dates: start: 20080101
  3. NEURONTIN [Suspect]
     Dosage: 300 mg, 1x/day
     Dates: start: 20080101
  4. GLUCOTROL [Suspect]
     Dosage: UNK
     Dates: start: 20080101
  5. CARDURA [Suspect]
     Dosage: UNK
     Dates: start: 20080101
  6. GLUCOTROL XL [Suspect]
     Dosage: UNK
     Dates: start: 20080101

REACTIONS (2)
  - Cerebrovascular accident [Unknown]
  - Diabetes mellitus [Unknown]
